FAERS Safety Report 8571234-X (Version None)
Quarter: 2012Q3

REPORT INFORMATION
  Report Type: 
  Country: None (occurrence: None)
  Receive Date: 20120806
  Receipt Date: 20120724
  Transmission Date: 20120928
  Serious: No
  Sender: FDA-Public Use
  Company Number: US-009507513-1207USA009824

PATIENT

DRUGS (2)
  1. ZETIA [Suspect]
     Indication: BLOOD CHOLESTEROL INCREASED
     Dosage: 10 MG, QD
     Route: 048
     Dates: start: 20120710
  2. SYNTHROID [Concomitant]

REACTIONS (3)
  - PYREXIA [None]
  - URTICARIA [None]
  - BONE PAIN [None]
